FAERS Safety Report 20374322 (Version 4)
Quarter: 2024Q2

REPORT INFORMATION
  Report Type: Spontaneous
  Country: CZ (occurrence: CZ)
  Receive Date: 20220125
  Receipt Date: 20240412
  Transmission Date: 20240716
  Serious: Yes (Hospitalization, Other)
  Sender: FDA-Public Use
  Company Number: CZ-Accord-251290

PATIENT
  Age: 49 Year
  Sex: Male
  Weight: 77 kg

DRUGS (9)
  1. MYCOPHENOLATE MOFETIL [Suspect]
     Active Substance: MYCOPHENOLATE MOFETIL
     Indication: Kidney transplant rejection
     Dosage: AT MONTH 2
     Route: 048
     Dates: start: 201907
  2. TACROLIMUS [Suspect]
     Active Substance: TACROLIMUS
     Indication: Immunosuppressant drug therapy
     Dosage: TARGET TACROLIMUS LEVELS 5-7 UG/L
     Route: 048
     Dates: start: 202103
  3. THYMOCYTE IMMUNE GLOBULIN NOS [Suspect]
     Active Substance: THYMOCYTE IMMUNE GLOBULIN NOS
     Indication: Kidney transplant rejection
     Dates: start: 201907
  4. ISCALIMAB [Suspect]
     Active Substance: ISCALIMAB
     Indication: Kidney transplant rejection
     Dosage: 300  MG OR 600  MG PARTIALLY BLINDED, BI-WEEKLY
     Route: 058
     Dates: start: 201907
  5. PREDNISONE [Suspect]
     Active Substance: PREDNISONE
     Indication: Immunosuppressant drug therapy
     Dosage: AT MONTH 3
     Route: 048
     Dates: start: 2019
  6. MYCOPHENOLATE MOFETIL [Suspect]
     Active Substance: MYCOPHENOLATE MOFETIL
     Indication: Kidney transplant rejection
     Dosage: AT POD 1
     Route: 048
     Dates: start: 201907
  7. MYCOPHENOLATE MOFETIL [Suspect]
     Active Substance: MYCOPHENOLATE MOFETIL
     Indication: Kidney transplant rejection
     Route: 048
     Dates: start: 2019, end: 202102
  8. THYMOCYTE IMMUNE GLOBULIN NOS [Suspect]
     Active Substance: THYMOCYTE IMMUNE GLOBULIN NOS
     Indication: Kidney transplant rejection
     Dosage: POD 0- POD 1
     Route: 042
     Dates: start: 201907
  9. PREDNISONE [Suspect]
     Active Substance: PREDNISONE
     Indication: Immunosuppressant drug therapy
     Route: 048
     Dates: start: 201907

REACTIONS (3)
  - COVID-19 [Unknown]
  - Disseminated tuberculosis [Recovering/Resolving]
  - Tracheitis [Unknown]

NARRATIVE: CASE EVENT DATE: 20201001
